FAERS Safety Report 17694256 (Version 4)
Quarter: 2020Q3

REPORT INFORMATION
  Report Type: Spontaneous
  Country: IE (occurrence: IE)
  Receive Date: 20200422
  Receipt Date: 20200901
  Transmission Date: 20201102
  Serious: Yes (Other)
  Sender: FDA-Public Use
  Company Number: IE-ANIPHARMA-2020-IE-000003

PATIENT
  Sex: Female

DRUGS (4)
  1. ANASTROZOLE. [Suspect]
     Active Substance: ANASTROZOLE
     Indication: PRODUCT USED FOR UNKNOWN INDICATION
     Dosage: 1 MG DAILY
     Route: 048
     Dates: start: 20200403, end: 20200420
  2. BETMIGA [Concomitant]
     Active Substance: MIRABEGRON
     Dosage: 50 MG DAILY
     Route: 048
  3. ANASTROZOLE TEVA [Suspect]
     Active Substance: ANASTROZOLE
     Dosage: 1 MG DAILY
     Dates: start: 20190902, end: 20200402
  4. CALCICHEW D3 FORTE [Concomitant]
     Active Substance: CALCIUM\CHOLECALCIFEROL
     Dosage: 400 IU DAILY
     Route: 048

REACTIONS (17)
  - Gastrooesophageal reflux disease [Not Recovered/Not Resolved]
  - Rash [Not Recovered/Not Resolved]
  - Myalgia [Unknown]
  - Bone pain [Unknown]
  - Asthenia [Not Recovered/Not Resolved]
  - Discomfort [Unknown]
  - Bone loss [Unknown]
  - Arthralgia [Unknown]
  - Pain [Unknown]
  - Vulvovaginal dryness [Unknown]
  - Joint stiffness [Unknown]
  - Hot flush [Not Recovered/Not Resolved]
  - Carpal tunnel syndrome [Unknown]
  - Emotional distress [Unknown]
  - Dizziness [Not Recovered/Not Resolved]
  - Arthritis [Unknown]
  - Alopecia [Unknown]
